FAERS Safety Report 4948948-3 (Version None)
Quarter: 2006Q1

REPORT INFORMATION
  Report Type: 
  Country: None (occurrence: None)
  Receive Date: 20060315
  Receipt Date: 20060224
  Transmission Date: 20060701
  Serious: Yes (Other)
  Sender: FDA-Public Use
  Company Number: US200511003348

PATIENT
  Age: 42 Year
  Sex: Female
  Weight: 67.1 kg

DRUGS (6)
  1. FORTEO [Suspect]
     Indication: STRESS FRACTURE
     Dosage: 20 UG, DAILY (1/D)
     Dates: start: 20050811, end: 20051014
  2. FORTEO [Concomitant]
  3. CALCIUM (CALCIUM) [Concomitant]
  4. VITAMIN D [Concomitant]
  5. ASPIRIN [Concomitant]
  6. LIPITOR [Concomitant]

REACTIONS (2)
  - STRESS FRACTURE [None]
  - TIBIA FRACTURE [None]
